FAERS Safety Report 13271059 (Version 1)
Quarter: 2017Q1

REPORT INFORMATION
  Report Type: Other
  Country: TW (occurrence: TW)
  Receive Date: 20170226
  Receipt Date: 20170226
  Transmission Date: 20170428
  Serious: Yes (Hospitalization)
  Sender: FDA-Public Use
  Company Number: TW-DEXPHARM-20170253

PATIENT
  Age: 58 Year
  Sex: Female

DRUGS (1)
  1. DICLOFENAC [Suspect]
     Active Substance: DICLOFENAC

REACTIONS (1)
  - Drug reaction with eosinophilia and systemic symptoms [Unknown]
